FAERS Safety Report 4603267-X (Version None)
Quarter: 2005Q1

REPORT INFORMATION
  Report Type: 
  Country: None (occurrence: None)
  Receive Date: 20050308
  Receipt Date: 20050224
  Transmission Date: 20050727
  Serious: Yes (Hospitalization)
  Sender: FDA-Public Use
  Company Number: 2005038541

PATIENT
  Age: 12 Year
  Sex: Female

DRUGS (1)
  1. GENOTONORM (SOMATROPIN) [Suspect]
     Indication: HYPOPITUITARISM
     Dates: start: 20030623

REACTIONS (1)
  - TENDONITIS [None]
